FAERS Safety Report 9685529 (Version 2)
Quarter: 2014Q1

REPORT INFORMATION
  Report Type: Spontaneous
  Country: DE (occurrence: DE)
  Receive Date: 20131113
  Receipt Date: 20140203
  Transmission Date: 20141002
  Serious: Yes (Hospitalization, Disabling)
  Sender: FDA-Public Use
  Company Number: DE-BRISTOL-MYERS SQUIBB COMPANY-19792217

PATIENT
  Age: 79 Year
  Sex: Male
  Weight: 75 kg

DRUGS (9)
  1. ELIQUIS [Suspect]
     Indication: ATRIAL FIBRILLATION
     Dosage: INTERRUPTED ON 07-OCT-2013 ?DURATION:3 DAYS
     Route: 048
     Dates: start: 20131005
  2. SPIRONOLACTONE [Suspect]
  3. BISOPROLOL [Concomitant]
     Indication: TACHYCARDIA
  4. IRBESARTAN [Concomitant]
  5. ATORVASTATIN [Concomitant]
  6. AMILORIDE [Concomitant]
     Dosage: 1DF: 2.5/25MG
  7. ESOMEPRAZOLE [Concomitant]
  8. ACETYLSALICYLIC ACID [Concomitant]
  9. SYSTANE [Concomitant]
     Dosage: 1DF: EYE DROPS
     Route: 047

REACTIONS (1)
  - Drug-induced liver injury [Recovering/Resolving]
